FAERS Safety Report 7685786-5 (Version None)
Quarter: 2011Q3

REPORT INFORMATION
  Report Type: 
  Country: None (occurrence: None)
  Receive Date: 20110815
  Receipt Date: 20110815
  Transmission Date: 20111222
  Serious: Yes (Life-Threatening, Hospitalization, Other)
  Sender: FDA-Public Use
  Company Number: None

PATIENT
  Age: 21 Year
  Sex: Female
  Weight: 70.306 kg

DRUGS (4)
  1. STRATTERA [Suspect]
     Indication: ATTENTION DEFICIT/HYPERACTIVITY DISORDER
     Dosage: 100MG
     Route: 048
  2. WELLBUTRIN [Concomitant]
     Route: 048
  3. KLONOPIN [Concomitant]
  4. LITHIUM CARBONATE [Concomitant]
     Route: 048

REACTIONS (5)
  - ASTHENIA [None]
  - SENSATION OF PRESSURE [None]
  - PAIN IN EXTREMITY [None]
  - CEREBROVASCULAR ACCIDENT [None]
  - SPEECH DISORDER [None]
